FAERS Safety Report 26044462 (Version 1)
Quarter: 2025Q4

REPORT INFORMATION
  Report Type: Report from Study
  Country: ET (occurrence: ET)
  Receive Date: 20251114
  Receipt Date: 20251114
  Transmission Date: 20260117
  Serious: Yes (Other)
  Sender: AUROBINDO
  Company Number: ET-AUROBINDO-AUR-APL-2025-057290

PATIENT
  Age: 22 Year
  Sex: Male

DRUGS (6)
  1. CEFTRIAXONE [Suspect]
     Active Substance: CEFTRIAXONE
     Indication: Appendicitis
     Dosage: UNK
     Route: 065
  2. CEFTRIAXONE [Suspect]
     Active Substance: CEFTRIAXONE
     Indication: Postoperative wound infection
  3. METRONIDAZOLE [Suspect]
     Active Substance: METRONIDAZOLE
     Indication: Appendicitis
     Dosage: UNK
     Route: 065
  4. METRONIDAZOLE [Suspect]
     Active Substance: METRONIDAZOLE
     Indication: Postoperative wound infection
  5. CIPROFLOXACIN [Concomitant]
     Active Substance: CIPROFLOXACIN
     Indication: Appendicitis
     Dosage: UNK
     Route: 065
  6. CIPROFLOXACIN [Concomitant]
     Active Substance: CIPROFLOXACIN
     Indication: Postoperative wound infection

REACTIONS (1)
  - Drug ineffective [Unknown]
